FAERS Safety Report 4480782-3 (Version None)
Quarter: 2004Q4

REPORT INFORMATION
  Report Type: 
  Country: None (occurrence: None)
  Receive Date: 20041019
  Receipt Date: 20041006
  Transmission Date: 20050328
  Serious: Yes (Hospitalization, Other)
  Sender: FDA-Public Use
  Company Number: 2004237765US

PATIENT
  Age: 26 Year
  Sex: Female
  Weight: 70.3 kg

DRUGS (3)
  1. CYTOTEC [Suspect]
     Indication: LABOUR INDUCTION
     Dosage: 50 UG
     Dates: start: 20031023, end: 20031023
  2. MULTIVITAMIN [Concomitant]
  3. SYNTHROID [Concomitant]

REACTIONS (16)
  - ARTIFICIAL MENOPAUSE [None]
  - CERVICITIS [None]
  - DRUG EXPOSURE DURING PREGNANCY [None]
  - ENDOMETRITIS [None]
  - HAEMATOMA [None]
  - HAEMORRHAGE [None]
  - OVARIAN DISORDER [None]
  - OVARIAN MASS [None]
  - OVARIAN TORSION [None]
  - PAIN [None]
  - POSTOPERATIVE ADHESION [None]
  - RETAINED PRODUCTS OF CONCEPTION [None]
  - THROMBOSIS [None]
  - UTERINE ATONY [None]
  - UTERINE HAEMORRHAGE [None]
  - VAGINAL HAEMORRHAGE [None]
